FAERS Safety Report 8286566-2 (Version None)
Quarter: 2012Q2

REPORT INFORMATION
  Report Type: 
  Country: None (occurrence: None)
  Receive Date: 20120416
  Receipt Date: 20120409
  Transmission Date: 20120825
  Serious: Yes (Hospitalization, Other)
  Sender: FDA-Public Use
  Company Number: US-BAYER-201026513NA

PATIENT
  Age: 24 Year
  Sex: Female
  Weight: 111 kg

DRUGS (21)
  1. LYRICA [Concomitant]
     Dosage: 300 MG (DAILY DOSE), BID, ORAL
     Route: 048
     Dates: start: 20080926
  2. ASMANEX TWISTHALER [Concomitant]
     Route: 048
     Dates: start: 20080901
  3. MEDROL [Concomitant]
  4. PROAIR HFA [Concomitant]
  5. YAZ [Suspect]
     Indication: CONTRACEPTION
     Dosage: UNK UNK, UNK
     Route: 048
     Dates: start: 20080701, end: 20080801
  6. IUD NOS [Concomitant]
     Route: 015
     Dates: start: 20060101
  7. PROTRIPTYLINE [Concomitant]
     Indication: HEADACHE
     Dates: start: 20080818
  8. LOVENOX [Concomitant]
     Indication: PULMONARY EMBOLISM
     Dates: start: 20080820
  9. PERCOCET [Concomitant]
     Indication: PAIN
     Dosage: UNK
     Dates: start: 20080812
  10. SALINEX NASAL [Concomitant]
  11. IBUPROFEN (ADVIL) [Concomitant]
     Indication: HEADACHE
     Dates: start: 20080101
  12. DEPO-PROVERA [Concomitant]
     Dates: start: 20080601
  13. PREVACID [Concomitant]
  14. TYLENOL (CAPLET) [Concomitant]
  15. LIDOCAINE [Concomitant]
  16. ORAL CONTRACEPTIVE NOS [Concomitant]
     Dates: start: 19950101, end: 20080601
  17. NADOL [Concomitant]
     Indication: HEADACHE
     Dates: start: 20080818
  18. HYDROCODONE BITARTRATE [Concomitant]
  19. NAPROXEN [Concomitant]
     Indication: HEADACHE
     Dosage: 1000 MG (DAILY DOSE), BID, ORAL
     Route: 048
     Dates: start: 20080101
  20. LYRICA [Concomitant]
     Indication: FIBROMYALGIA
     Dosage: 150 MG (DAILY DOSE), BID, ORAL
     Route: 048
     Dates: start: 20080919, end: 20080925
  21. AMBIEN [Concomitant]
     Dosage: 10 MG (DAILY DOSE), HS, ORAL
     Route: 048
     Dates: start: 20080101

REACTIONS (9)
  - DYSPNOEA [None]
  - BRAIN OEDEMA [None]
  - PULMONARY MYCOSIS [None]
  - BACK PAIN [None]
  - CHEST DISCOMFORT [None]
  - ASTHMA [None]
  - PLEURITIC PAIN [None]
  - PULMONARY EMBOLISM [None]
  - HYPOAESTHESIA [None]
